FAERS Safety Report 5381711-0 (Version None)
Quarter: 2007Q3

REPORT INFORMATION
  Report Type: 
  Country: None (occurrence: None)
  Receive Date: 20070709
  Receipt Date: 20070629
  Transmission Date: 20080115
  Serious: Yes (Other)
  Sender: FDA-Public Use
  Company Number: PHEH2007US09442

PATIENT
  Age: 20 Year
  Sex: Male

DRUGS (2)
  1. DIOVAN HCT [Suspect]
     Dosage: UNK, QD
     Route: 048
  2. DIOVAN [Suspect]
     Dosage: UNK, QD
     Route: 048

REACTIONS (3)
  - CARDIAC FAILURE [None]
  - DYSPNOEA [None]
  - FATIGUE [None]
